FAERS Safety Report 4387648-8 (Version None)
Quarter: 2004Q2

REPORT INFORMATION
  Report Type: 
  Country: None (occurrence: None)
  Receive Date: 20040630
  Receipt Date: 20040527
  Transmission Date: 20050107
  Serious: No
  Sender: FDA-Public Use
  Company Number: US-GLAXOSMITHKLINE-A0512410A

PATIENT
  Age: 67 Year
  Sex: Male

DRUGS (6)
  1. ADVAIR HFA [Suspect]
     Indication: ILL-DEFINED DISORDER
     Dosage: 1PUFF TWICE PER DAY
     Route: 055
  2. CELEBREX [Concomitant]
  3. NIACIN [Concomitant]
  4. DIAVAN [Concomitant]
  5. AVANDIA [Concomitant]
  6. TRANXENE [Concomitant]

REACTIONS (1)
  - DYSPNOEA [None]
